FAERS Safety Report 8809112 (Version 1)
Quarter: 2012Q4

REPORT INFORMATION
  Report Type: Spontaneous
  Country: US (occurrence: None)
  Receive Date: 20120921
  Receipt Date: 20120921
  Transmission Date: 20130627
  Serious: Yes (Hospitalization)
  Sender: FDA-Public Use
  Company Number: None

PATIENT
  Age: 70 Year
  Sex: Male
  Weight: 104.3 kg

DRUGS (4)
  1. BORTEZOMIB [Suspect]
     Indication: SMALL CELL LYMPHOCYTIC LYMPHOMA
     Dosage: 3.6mg  D1/D8  IV
     Route: 042
     Dates: start: 20120730, end: 20120806
  2. BORTEZOMIB [Suspect]
     Indication: CHRONIC LYMPHOCYTIC LEUKEMIA
     Dosage: 3.6mg  D1/D8  IV
     Route: 042
     Dates: start: 20120730, end: 20120806
  3. TEMSIROLIMUS [Suspect]
     Indication: SMALL CELL LYMPHOCYTIC LYMPHOMA
     Dosage: 25 mg   D1/D8   IV
     Route: 042
     Dates: start: 20120730, end: 20120806
  4. TEMSIROLIMUS [Suspect]
     Indication: CHRONIC LYMPHOCYTIC LEUKEMIA
     Dosage: 25 mg   D1/D8   IV
     Route: 042
     Dates: start: 20120730, end: 20120806

REACTIONS (7)
  - Groin pain [None]
  - Thrombocytopenia [None]
  - Lobar pneumonia [None]
  - Bacterial infection [None]
  - B-cell small lymphocytic lymphoma [None]
  - Malignant neoplasm progression [None]
  - Chronic lymphocytic leukaemia [None]
